FAERS Safety Report 15035031 (Version 1)
Quarter: 2018Q2

REPORT INFORMATION
  Report Type: Spontaneous
  Country: US (occurrence: US)
  Receive Date: 20180620
  Receipt Date: 20180620
  Transmission Date: 20180711
  Serious: No
  Sender: FDA-Public Use
  Company Number: US-PFIZER INC-2018243023

PATIENT
  Age: 88 Year
  Sex: Female
  Weight: 69.39 kg

DRUGS (6)
  1. LYRICA [Suspect]
     Active Substance: PREGABALIN
     Dosage: 100 MG, 1X/DAY (FOR A WEEK) (SHE TAKES LYRICA AT NIGHT)
  2. ALPRAZOLAM. [Concomitant]
     Active Substance: ALPRAZOLAM
     Indication: INSOMNIA
     Dosage: 1 MG, 1X/DAY (AT NIGHT)
  3. LYRICA [Suspect]
     Active Substance: PREGABALIN
     Indication: NEUROPATHY PERIPHERAL
     Dosage: 50 MG, 1X/DAY (SHE TAKES LYRICA AT NIGHT)
  4. ALPRAZOLAM. [Concomitant]
     Active Substance: ALPRAZOLAM
     Dosage: 1 MG, 1X/DAY
  5. LYRICA [Suspect]
     Active Substance: PREGABALIN
     Dosage: 75 MG, 1X/DAY (SHE TAKES LYRICA AT NIGHT)
  6. ALPRAZOLAM. [Concomitant]
     Active Substance: ALPRAZOLAM
     Dosage: 1.5 MG, UNK

REACTIONS (8)
  - Anxiety [Unknown]
  - Balance disorder [Unknown]
  - Visual impairment [Unknown]
  - Glare [Unknown]
  - Nervousness [Unknown]
  - Pain in extremity [Unknown]
  - Feeling abnormal [Unknown]
  - Somnolence [Unknown]
